FAERS Safety Report 10229746 (Version 1)
Quarter: 2014Q2

REPORT INFORMATION
  Report Type: Spontaneous
  Country: US (occurrence: None)
  Receive Date: 20140610
  Receipt Date: 20140610
  Transmission Date: 20141212
  Serious: Yes (Hospitalization)
  Sender: FDA-Public Use
  Company Number: None

PATIENT
  Age: 1 Day
  Sex: Female
  Weight: 86.64 kg

DRUGS (1)
  1. COPAXONE 20MG [Suspect]
     Indication: MULTIPLE SCLEROSIS
     Route: 048
     Dates: start: 2008, end: 20140531

REACTIONS (3)
  - Vertigo [None]
  - Peroneal nerve palsy [None]
  - Condition aggravated [None]
